FAERS Safety Report 20381163 (Version 2)
Quarter: 2022Q1

REPORT INFORMATION
  Report Type: Spontaneous
  Country: DE (occurrence: DE)
  Receive Date: 20220127
  Receipt Date: 20220325
  Transmission Date: 20220423
  Serious: Yes (Hospitalization, Other)
  Sender: FDA-Public Use
  Company Number: DE-BoehringerIngelheim-2022-BI-150329

PATIENT
  Age: 81 Year
  Sex: Male

DRUGS (3)
  1. JARDIANCE [Suspect]
     Active Substance: EMPAGLIFLOZIN
     Indication: Type 2 diabetes mellitus
     Dosage: 1-0-0
     Route: 048
     Dates: end: 20211217
  2. METFORMIN [Concomitant]
     Active Substance: METFORMIN HYDROCHLORIDE
     Indication: Type 2 diabetes mellitus
  3. Sitagliptin 100 mg [Concomitant]
     Indication: Type 2 diabetes mellitus
     Dosage: 1-0-0
     Route: 048

REACTIONS (7)
  - Ketoacidosis [Recovered/Resolved]
  - Syncope [Unknown]
  - COVID-19 [Recovered/Resolved]
  - Hypophagia [Unknown]
  - Febrile infection [Unknown]
  - Dehydration [Unknown]
  - Illness [Unknown]

NARRATIVE: CASE EVENT DATE: 20211217
